FAERS Safety Report 25118688 (Version 1)
Quarter: 2025Q1

REPORT INFORMATION
  Report Type: Spontaneous
  Country: US (occurrence: US)
  Receive Date: 20250325
  Receipt Date: 20250325
  Transmission Date: 20250409
  Serious: Yes (Disabling, Other)
  Sender: MERCK SHARP & DOHME LLC
  Company Number: US-009507513-2267456

PATIENT

DRUGS (3)
  1. KEYTRUDA [Suspect]
     Active Substance: PEMBROLIZUMAB
     Indication: Transitional cell carcinoma
  2. KEYTRUDA [Suspect]
     Active Substance: PEMBROLIZUMAB
     Indication: Transitional cell carcinoma
  3. KEYTRUDA [Suspect]
     Active Substance: PEMBROLIZUMAB
     Indication: Transitional cell carcinoma

REACTIONS (9)
  - Arthritis [Not Recovered/Not Resolved]
  - Immune-mediated hepatitis [Not Recovered/Not Resolved]
  - Myalgia [Not Recovered/Not Resolved]
  - Immune-mediated hepatitis [Recovering/Resolving]
  - Immune-mediated hepatitis [Unknown]
  - Myalgia [Recovering/Resolving]
  - Myalgia [Unknown]
  - Arthritis [Recovering/Resolving]
  - Arthritis [Unknown]

NARRATIVE: CASE EVENT DATE: 20250217
